FAERS Safety Report 4752668-8 (Version None)
Quarter: 2005Q3

REPORT INFORMATION
  Report Type: 
  Country: None (occurrence: None)
  Receive Date: 20050822
  Receipt Date: 20050809
  Transmission Date: 20060218
  Serious: Yes (Hospitalization)
  Sender: FDA-Public Use
  Company Number: DSA_26759_2005

PATIENT
  Age: 45 Year
  Sex: Female

DRUGS (5)
  1. LORAZEPAM [Suspect]
     Dosage: DF ONCE PO
     Route: 048
     Dates: start: 20050712, end: 20050712
  2. AKINETON [Suspect]
     Dosage: DF ONCE PO
     Route: 048
     Dates: start: 20050712, end: 20050712
  3. DOMINAL ^ASTA^ [Suspect]
     Dosage: DF ONCE PO
     Route: 048
     Dates: start: 20050712, end: 20050712
  4. LYOGEN [Suspect]
     Dosage: DF ONCE PO
     Route: 048
     Dates: start: 20050712, end: 20050712
  5. TRUXAL [Suspect]
     Dosage: DF ONCE PO
     Route: 048
     Dates: start: 20050712, end: 20050712

REACTIONS (8)
  - ALANINE AMINOTRANSFERASE INCREASED [None]
  - ASPARTATE AMINOTRANSFERASE INCREASED [None]
  - BLOOD CREATINE PHOSPHOKINASE INCREASED [None]
  - BLOOD LACTATE DEHYDROGENASE INCREASED [None]
  - CONVULSION [None]
  - INTENTIONAL MISUSE [None]
  - MULTIPLE DRUG OVERDOSE [None]
  - SOPOR [None]
